FAERS Safety Report 7465444-2 (Version None)
Quarter: 2011Q2

REPORT INFORMATION
  Report Type: 
  Country: None (occurrence: None)
  Receive Date: 20110509
  Receipt Date: 20110505
  Transmission Date: 20111010
  Serious: Yes (Death, Other)
  Sender: FDA-Public Use
  Company Number: AU-ROCHE-735915

PATIENT
  Sex: Female

DRUGS (5)
  1. HERCEPTIN [Suspect]
     Route: 042
     Dates: start: 20100514, end: 20100827
  2. DOCETAXEL [Suspect]
     Indication: BREAST CANCER
     Dosage: FOUR DOSES
     Route: 042
     Dates: start: 20091009
  3. HERCEPTIN [Suspect]
     Indication: BREAST CANCER
     Dosage: LOADING DOSE.
     Route: 042
  4. LAPATINIB [Suspect]
     Indication: BREAST CANCER
     Dosage: THERAPY DURATION: 50 DAYS
     Route: 048
     Dates: start: 20100210, end: 20100331
  5. HERCEPTIN [Suspect]
     Route: 042
     Dates: start: 20091009

REACTIONS (18)
  - PYREXIA [None]
  - ATELECTASIS [None]
  - HEAD INJURY [None]
  - INTESTINAL ISCHAEMIA [None]
  - BLOOD SODIUM DECREASED [None]
  - ASPARTATE AMINOTRANSFERASE INCREASED [None]
  - HYPOTENSION [None]
  - CARDIOMEGALY [None]
  - BLOOD UREA INCREASED [None]
  - BLOOD ALKALINE PHOSPHATASE INCREASED [None]
  - ALANINE AMINOTRANSFERASE INCREASED [None]
  - DEATH [None]
  - LEFT VENTRICULAR DYSFUNCTION [None]
  - FALL [None]
  - BLOOD LACTATE DEHYDROGENASE INCREASED [None]
  - PLEURAL EFFUSION [None]
  - GAMMA-GLUTAMYLTRANSFERASE INCREASED [None]
  - DIARRHOEA [None]
